FAERS Safety Report 8370756-4 (Version None)
Quarter: 2012Q2

REPORT INFORMATION
  Report Type: 
  Country: None (occurrence: None)
  Receive Date: 20120518
  Receipt Date: 20120326
  Transmission Date: 20120825
  Serious: Yes (Other)
  Sender: FDA-Public Use
  Company Number: US-ALEXION-A201200396

PATIENT
  Sex: Female
  Weight: 66.667 kg

DRUGS (8)
  1. PREDNISONE [Concomitant]
     Dosage: 40 MG, QD
     Route: 048
     Dates: end: 20120314
  2. FOLIC ACID [Concomitant]
     Dosage: 1 MG, QD
     Route: 048
  3. IRON SULFATETHIAMIN COMPOUND TAB [Concomitant]
     Dosage: UNK
  4. LOVENOX [Concomitant]
     Dosage: 60 MG, BID
     Route: 058
  5. SOLIRIS [Suspect]
     Dosage: 1200 MG, Q2W
     Route: 042
     Dates: start: 20120301
  6. SOLIRIS [Suspect]
     Indication: PAROXYSMAL NOCTURNAL HAEMOGLOBINURIA
     Dosage: 600 MG, QW
     Route: 042
     Dates: start: 20110601
  7. SOLIRIS [Suspect]
     Dosage: 900 MG, Q2W
     Route: 042
  8. SOLIRIS [Suspect]
     Dosage: 900 MG, QW
     Route: 042

REACTIONS (2)
  - MATERNAL EXPOSURE DURING PREGNANCY [None]
  - HAEMOLYSIS [None]
